FAERS Safety Report 9524786 (Version 2)
Quarter: 2013Q4

REPORT INFORMATION
  Report Type: Report from Study
  Country: US (occurrence: US)
  Receive Date: 20130916
  Receipt Date: 20131007
  Transmission Date: 20140711
  Serious: No
  Sender: FDA-Public Use
  Company Number: US-VERTEX PHARMACEUTICALS INC-2013-009470

PATIENT
  Age: 59 Year
  Sex: Male

DRUGS (12)
  1. VX-950 (TELAPREVIR) [Suspect]
     Indication: HEPATITIS C
     Dosage: UNK
     Dates: start: 20130809
  2. PEGASYS [Suspect]
     Indication: HEPATITIS C
     Dosage: UNK
     Dates: start: 20130809
  3. RIBAVIRIN [Suspect]
     Indication: HEPATITIS C
     Dosage: UNK
     Dates: start: 20130809
  4. GLIMEPIRIDE [Concomitant]
  5. METFORMIN [Concomitant]
  6. MULTIVITAMIN [Concomitant]
  7. OMEPRAZOLE [Concomitant]
  8. WELCHOL [Concomitant]
  9. VITAMIN D3 [Concomitant]
  10. OMEGA 3 [Concomitant]
  11. FOLTX [Concomitant]
  12. CINNAMON [Concomitant]

REACTIONS (6)
  - Injection site irritation [Not Recovered/Not Resolved]
  - Blood uric acid increased [Recovered/Resolved]
  - Platelet count decreased [Not Recovered/Not Resolved]
  - Rash papular [Not Recovered/Not Resolved]
  - Dry skin [Not Recovered/Not Resolved]
  - Pruritus [Not Recovered/Not Resolved]
